FAERS Safety Report 13668102 (Version 3)
Quarter: 2017Q3

REPORT INFORMATION
  Report Type: Spontaneous
  Country: US (occurrence: US)
  Receive Date: 20170620
  Receipt Date: 20170828
  Transmission Date: 20171127
  Serious: Yes (Life-Threatening, Other)
  Sender: FDA-Public Use
  Company Number: US-PFIZER INC-2017265238

PATIENT
  Age: 54 Year
  Sex: Male

DRUGS (3)
  1. XELJANZ XR [Suspect]
     Active Substance: TOFACITINIB CITRATE
     Indication: RHEUMATOID ARTHRITIS
     Dosage: 11 MG, DAILY
     Route: 048
     Dates: start: 201706, end: 20170705
  2. XELJANZ XR [Suspect]
     Active Substance: TOFACITINIB CITRATE
     Dosage: 1 DF, 1X/DAY
     Route: 048
     Dates: start: 20170610, end: 20170705
  3. XELJANZ XR [Suspect]
     Active Substance: TOFACITINIB CITRATE
     Indication: HERPES ZOSTER
     Dosage: 11 MG, DAILY
     Route: 048
     Dates: start: 201706, end: 20170705

REACTIONS (4)
  - Oropharyngeal pain [Unknown]
  - Herpes zoster [Recovering/Resolving]
  - Fatigue [Unknown]
  - Headache [Unknown]

NARRATIVE: CASE EVENT DATE: 201706
